FAERS Safety Report 7028727-6 (Version None)
Quarter: 2010Q4

REPORT INFORMATION
  Report Type: 
  Country: None (occurrence: None)
  Receive Date: 20101005
  Receipt Date: 20100928
  Transmission Date: 20110411
  Serious: Yes (Disabling, Other)
  Sender: FDA-Public Use
  Company Number: BR-BAYER-201012141LA

PATIENT
  Age: 27 Year
  Sex: Female

DRUGS (3)
  1. BETAFERON [Suspect]
     Indication: MULTIPLE SCLEROSIS
     Dosage: BETAJECT
     Route: 058
     Dates: start: 20090401
  2. UNKNOWN DRUG [Concomitant]
     Indication: PYREXIA
     Route: 065
  3. UNKNOWN DRUG [Concomitant]
     Indication: CONTRACEPTION
     Route: 065
     Dates: start: 20090501

REACTIONS (17)
  - APATHY [None]
  - APHAGIA [None]
  - ASTHENIA [None]
  - BEDRIDDEN [None]
  - DEPRESSION [None]
  - DIZZINESS [None]
  - HEMIPARESIS [None]
  - INJECTION SITE DISCOLOURATION [None]
  - INJECTION SITE PAIN [None]
  - INJECTION SITE RASH [None]
  - INSOMNIA [None]
  - MENSTRUAL DISORDER [None]
  - MOBILITY DECREASED [None]
  - PAIN [None]
  - PYREXIA [None]
  - SENSORY DISTURBANCE [None]
  - SYNCOPE [None]
